FAERS Safety Report 16623093 (Version 1)
Quarter: 2019Q3

REPORT INFORMATION
  Report Type: Spontaneous
  Country: US (occurrence: US)
  Receive Date: 20190723
  Receipt Date: 20190723
  Transmission Date: 20191004
  Serious: Yes (Hospitalization)
  Sender: FDA-Public Use
  Company Number: US-ASTRAZENECA-2019SF04343

PATIENT
  Sex: Male

DRUGS (1)
  1. ACALABRUTINIB. [Suspect]
     Active Substance: ACALABRUTINIB
     Dosage: UNKNOWN
     Route: 048

REACTIONS (1)
  - Eye infection fungal [Unknown]
